FAERS Safety Report 6063423-3 (Version None)
Quarter: 2009Q1

REPORT INFORMATION
  Report Type: 
  Country: None (occurrence: None)
  Receive Date: 20090129
  Receipt Date: 20090116
  Transmission Date: 20090719
  Serious: Yes (Death, Hospitalization)
  Sender: FDA-Public Use
  Company Number: ACO_00508_2009

PATIENT
  Sex: Female

DRUGS (10)
  1. ZANAFLEX [Suspect]
     Indication: DRUG USE FOR UNKNOWN INDICATION
     Dosage: DF
  2. TYSABRI [Suspect]
     Indication: MULTIPLE SCLEROSIS
     Dosage: 300 MG 1X/MONTH INTRAVENOUS (NOT OTHERWISE SPECIFIED)
     Route: 042
     Dates: start: 20080107, end: 20080811
  3. LAMICTAL [Concomitant]
  4. CEREFOLIN [Concomitant]
  5. PRIMIDONE [Concomitant]
  6. METANX [Concomitant]
  7. AVONEX /05982701/ [Concomitant]
  8. GEODON /01487002/ [Concomitant]
  9. CELEXA [Concomitant]
  10. VALIUM /0001701/ [Concomitant]

REACTIONS (2)
  - INTENTIONAL SELF-INJURY [None]
  - THERMAL BURN [None]
